FAERS Safety Report 16089942 (Version 1)
Quarter: 2019Q1

REPORT INFORMATION
  Report Type: Spontaneous
  Country: US (occurrence: US)
  Receive Date: 20190319
  Receipt Date: 20190319
  Transmission Date: 20190418
  Serious: Yes (Hospitalization)
  Sender: FDA-Public Use
  Company Number: INDV-118274-2019

PATIENT
  Sex: Male

DRUGS (1)
  1. SUBLOCADE [Suspect]
     Active Substance: BUPRENORPHINE
     Indication: DRUG DEPENDENCE
     Dosage: 300 MILLIGRAM, QMO (6 INJECTIONS RECEIVED)
     Route: 058
     Dates: start: 20180910, end: 20190312

REACTIONS (2)
  - Injection site pruritus [Recovered/Resolved]
  - Ulcer [Recovered/Resolved]

NARRATIVE: CASE EVENT DATE: 20190311
